FAERS Safety Report 7888975-X (Version None)
Quarter: 2011Q4

REPORT INFORMATION
  Report Type: 
  Country: None (occurrence: None)
  Receive Date: 20111103
  Receipt Date: 20111027
  Transmission Date: 20120403
  Serious: Yes (Hospitalization)
  Sender: FDA-Public Use
  Company Number: PHHY2011US63073

PATIENT
  Sex: Male
  Weight: 75.4 kg

DRUGS (2)
  1. EXJADE [Suspect]
     Indication: HAEMOCHROMATOSIS
     Dosage: 500 MG, UNK
     Route: 048
     Dates: start: 20111022
  2. EXJADE [Suspect]
     Indication: MYELODYSPLASTIC SYNDROME
     Dosage: 1500 MG, DAILY
     Route: 048
     Dates: start: 20090102, end: 20110914

REACTIONS (5)
  - DUODENAL ULCER [None]
  - CHEST PAIN [None]
  - HERPES ZOSTER [None]
  - BACK PAIN [None]
  - ABDOMINAL PAIN UPPER [None]
